FAERS Safety Report 24462886 (Version 3)
Quarter: 2025Q2

REPORT INFORMATION
  Report Type: Spontaneous
  Country: US (occurrence: US)
  Receive Date: 20241018
  Receipt Date: 20250630
  Transmission Date: 20250716
  Serious: Yes (Death, Other)
  Sender: CATALYST PHARMA
  Company Number: US-CATALYST PHARMACEUTICALS, INC-US-CATA-24-00843

PATIENT
  Sex: Female
  Weight: 62.132 kg

DRUGS (7)
  1. FIRDAPSE [Suspect]
     Active Substance: AMIFAMPRIDINE PHOSPHATE
     Indication: Myasthenic syndrome
     Dosage: 5 MG 3 TIMES DAILY
     Route: 048
     Dates: start: 20240503, end: 2024
  2. FIRDAPSE [Suspect]
     Active Substance: AMIFAMPRIDINE PHOSPHATE
     Dosage: 2 TABLETS 5 X DAY (100 MG DAILY)
     Route: 048
     Dates: start: 20240809, end: 202506
  3. LISINOPRIL [Concomitant]
     Active Substance: LISINOPRIL
     Indication: Product used for unknown indication
     Route: 065
  4. MESTINON [Concomitant]
     Active Substance: PYRIDOSTIGMINE BROMIDE
     Indication: Product used for unknown indication
     Route: 065
  5. ALENDRONATE [Concomitant]
     Active Substance: ALENDRONATE SODIUM
     Indication: Product used for unknown indication
     Route: 065
  6. TYLENOL EXTRA STRENGTH [Concomitant]
     Active Substance: ACETAMINOPHEN
     Indication: Product used for unknown indication
     Route: 065
  7. HAIR SKIN NAILS VITAMINS [Concomitant]
     Indication: Product used for unknown indication
     Route: 065

REACTIONS (12)
  - Death [Fatal]
  - Myasthenic syndrome [Unknown]
  - Condition aggravated [Unknown]
  - General physical health deterioration [Unknown]
  - Seizure [Unknown]
  - Cataract [Recovered/Resolved]
  - Productive cough [Unknown]
  - Gait inability [Not Recovered/Not Resolved]
  - Diplopia [Not Recovered/Not Resolved]
  - Fall [Unknown]
  - Drug ineffective [Unknown]
  - Accidental overdose [Unknown]

NARRATIVE: CASE EVENT DATE: 20240101
